FAERS Safety Report 20827482 (Version 5)
Quarter: 2022Q3

REPORT INFORMATION
  Report Type: Report from Study
  Country: US (occurrence: US)
  Receive Date: 20220513
  Receipt Date: 20220819
  Transmission Date: 20221027
  Serious: Yes (Death, Hospitalization, Other)
  Sender: FDA-Public Use
  Company Number: US-OTSUKA-2022_027013

PATIENT
  Age: 72 Year
  Sex: Male
  Weight: 84.9 kg

DRUGS (2)
  1. CEDAZURIDINE\DECITABINE [Suspect]
     Active Substance: CEDAZURIDINE\DECITABINE
     Indication: Myelodysplastic syndrome
     Dosage: 135 MG (35 MG DECITABINE AND 100 MG CEDAZURIDINE), QD 1-5 TABLETS (DAYS 1-5) EVERY 28 DAYS CYCLE
     Route: 048
     Dates: start: 20220330
  2. VENCLEXTA [Concomitant]
     Active Substance: VENETOCLAX
     Indication: Myelodysplastic syndrome
     Dosage: 400 MG, QD
     Route: 065
     Dates: start: 20220330

REACTIONS (7)
  - Death [Fatal]
  - Pericardial effusion [Recovering/Resolving]
  - Transfusion [Unknown]
  - Mastication disorder [Unknown]
  - Dyspepsia [Unknown]
  - Tooth resorption [Unknown]
  - Abdominal pain upper [Unknown]

NARRATIVE: CASE EVENT DATE: 20220722
